FAERS Safety Report 4444277-5 (Version None)
Quarter: 2004Q3

REPORT INFORMATION
  Report Type: 
  Country: None (occurrence: None)
  Receive Date: 20040729
  Receipt Date: 20031118
  Transmission Date: 20050211
  Serious: Yes (Other)
  Sender: FDA-Public Use
  Company Number: USA-2003-0010901

PATIENT
  Age: 27 Year
  Sex: Male

DRUGS (1)
  1. MS CONTIN [Suspect]
     Indication: PAIN

REACTIONS (2)
  - DRUG ABUSER [None]
  - ILL-DEFINED DISORDER [None]
